FAERS Safety Report 5012622-8 (Version None)
Quarter: 2006Q2

REPORT INFORMATION
  Report Type: 
  Country: None (occurrence: None)
  Receive Date: 20060411
  Receipt Date: 20060123
  Transmission Date: 20061013
  Serious: No
  Sender: FDA-Public Use
  Company Number: 2006S1000018

PATIENT
  Sex: Female

DRUGS (1)
  1. CUBICIN [Suspect]
     Dosage: 6 MG/KG

REACTIONS (1)
  - BLOOD CREATINE PHOSPHOKINASE INCREASED [None]
